FAERS Safety Report 13219192 (Version 2)
Quarter: 2017Q1

REPORT INFORMATION
  Report Type: Spontaneous
  Country: SE (occurrence: SE)
  Receive Date: 20170210
  Receipt Date: 20170225
  Transmission Date: 20170428
  Serious: Yes (Other)
  Sender: FDA-Public Use
  Company Number: SE-ACCORD-048169

PATIENT
  Age: 48 Year
  Sex: Female

DRUGS (4)
  1. MITOTANE [Suspect]
     Active Substance: MITOTANE
     Indication: METASTASES TO LIVER
  2. CISPLATIN. [Suspect]
     Active Substance: CISPLATIN
     Indication: METASTASES TO LIVER
  3. ETOPOSIDE. [Suspect]
     Active Substance: ETOPOSIDE
     Indication: METASTASES TO LIVER
  4. DOXORUBICIN [Suspect]
     Active Substance: DOXORUBICIN
     Indication: METASTASES TO LIVER

REACTIONS (4)
  - Dysgeusia [Not Recovered/Not Resolved]
  - Deafness [Recovering/Resolving]
  - Neuropathy peripheral [Recovering/Resolving]
  - Fatigue [Recovered/Resolved]

NARRATIVE: CASE EVENT DATE: 20130607
